FAERS Safety Report 24776756 (Version 1)
Quarter: 2024Q4

REPORT INFORMATION
  Report Type: Spontaneous
  Country: GB (occurrence: GB)
  Receive Date: 20241226
  Receipt Date: 20241226
  Transmission Date: 20250115
  Serious: Yes (Other)
  Sender: ACCORD
  Company Number: None

PATIENT
  Sex: Female

DRUGS (2)
  1. FLUOXETINE [Suspect]
     Active Substance: FLUOXETINE HYDROCHLORIDE
     Indication: Product used for unknown indication
  2. MAGNESIUM [Concomitant]
     Active Substance: MAGNESIUM
     Indication: Adverse drug reaction

REACTIONS (8)
  - Nightmare [Unknown]
  - Insomnia [Unknown]
  - Weight decreased [Unknown]
  - Loss of libido [Not Recovered/Not Resolved]
  - Night sweats [Recovered/Resolved]
  - Mania [Unknown]
  - Energy increased [Not Recovered/Not Resolved]
  - Alcohol interaction [Not Recovered/Not Resolved]
